FAERS Safety Report 7258107-X (Version None)
Quarter: 2011Q1

REPORT INFORMATION
  Report Type: 
  Country: None (occurrence: None)
  Receive Date: 20110129
  Receipt Date: 20100630
  Transmission Date: 20110831
  Serious: No
  Sender: FDA-Public Use
  Company Number: US-ABBOTT-10P-163-0655464-00

PATIENT
  Sex: Female

DRUGS (4)
  1. ZYRTEC-D 12 HOUR [Concomitant]
     Indication: HYPERSENSITIVITY
  2. PROTONIX [Concomitant]
     Indication: GASTRITIS
  3. SINGULAIR [Concomitant]
     Indication: HYPERSENSITIVITY
  4. HUMIRA [Suspect]
     Indication: CROHN'S DISEASE
     Dates: start: 20090515

REACTIONS (2)
  - FATIGUE [None]
  - CROHN'S DISEASE [None]
